FAERS Safety Report 9108563 (Version 1)
Quarter: 2013Q1

REPORT INFORMATION
  Report Type: Spontaneous
  Country: PL (occurrence: PL)
  Receive Date: 20130222
  Receipt Date: 20130222
  Transmission Date: 20140127
  Serious: Yes (Life-Threatening, Other)
  Sender: FDA-Public Use
  Company Number: PL-GE HEALTHCARE MEDICAL DIAGNOSTICS-VISP-NO-1302S-0411

PATIENT
  Age: 58 None
  Sex: Female
  Weight: 90 kg

DRUGS (2)
  1. VISIPAQUE [Suspect]
     Indication: TRIGEMINAL NERVE DISORDER
     Route: 042
     Dates: start: 20130213, end: 20130213
  2. VISIPAQUE [Suspect]
     Indication: DIAGNOSTIC PROCEDURE

REACTIONS (6)
  - Erythema [Unknown]
  - Pruritus [Unknown]
  - Eyelid oedema [Unknown]
  - Syncope [Unknown]
  - Blood pressure decreased [Unknown]
  - Heart rate decreased [Unknown]
